FAERS Safety Report 5411768-X (Version None)
Quarter: 2007Q3

REPORT INFORMATION
  Report Type: 
  Country: None (occurrence: None)
  Receive Date: 20070713
  Receipt Date: 20070316
  Transmission Date: 20080115
  Serious: No
  Sender: FDA-Public Use
  Company Number: 2007SP000959

PATIENT
  Age: 45 Year
  Sex: Male
  Weight: 84.8226 kg

DRUGS (6)
  1. LUNESTA [Suspect]
     Indication: INSOMNIA
     Dosage: 1 MG;ORAL ; 2 MG;ORAL ; 3 MG;ORAL ; 6 MG;ORAL
     Route: 048
     Dates: start: 20050101, end: 20050101
  2. LUNESTA [Suspect]
     Indication: INSOMNIA
     Dosage: 1 MG;ORAL ; 2 MG;ORAL ; 3 MG;ORAL ; 6 MG;ORAL
     Route: 048
     Dates: start: 20050101, end: 20050101
  3. LUNESTA [Suspect]
     Indication: INSOMNIA
     Dosage: 1 MG;ORAL ; 2 MG;ORAL ; 3 MG;ORAL ; 6 MG;ORAL
     Route: 048
     Dates: start: 20050101, end: 20060101
  4. LUNESTA [Suspect]
     Indication: INSOMNIA
     Dosage: 1 MG;ORAL ; 2 MG;ORAL ; 3 MG;ORAL ; 6 MG;ORAL
     Route: 048
     Dates: start: 20061101
  5. REMERON [Suspect]
     Indication: INSOMNIA
     Dosage: 45 MG;ORAL
     Route: 048
     Dates: start: 20060101, end: 20070101
  6. SUMATRIPTAN SUCCINATE [Concomitant]

REACTIONS (4)
  - DRUG INEFFECTIVE [None]
  - IRRITABILITY [None]
  - MIDDLE INSOMNIA [None]
  - WEIGHT DECREASED [None]
